FAERS Safety Report 5047464-0 (Version None)
Quarter: 2006Q3

REPORT INFORMATION
  Report Type: 
  Country: None (occurrence: None)
  Receive Date: 20060711
  Receipt Date: 20060516
  Transmission Date: 20061208
  Serious: Yes (Hospitalization, Disabling)
  Sender: FDA-Public Use
  Company Number: PHBS2006JP07228

PATIENT
  Age: 72 Year
  Sex: Female

DRUGS (2)
  1. ANAESTHETICS, LOCAL [Concomitant]
     Route: 065
     Dates: start: 20060518
  2. AREDIA [Suspect]
     Indication: METASTASES TO BONE
     Dosage: 30 MG,
     Route: 042
     Dates: start: 20020314

REACTIONS (6)
  - OSTEOMYELITIS [None]
  - OSTEONECROSIS [None]
  - PURULENT DISCHARGE [None]
  - SEQUESTRECTOMY [None]
  - TOOTH LOSS [None]
  - TOOTH REPAIR [None]
